FAERS Safety Report 26185609 (Version 1)
Quarter: 2025Q4

REPORT INFORMATION
  Report Type: Spontaneous
  Country: TR (occurrence: TR)
  Receive Date: 20251222
  Receipt Date: 20251222
  Transmission Date: 20260117
  Serious: Yes (Death)
  Sender: ASTELLAS
  Company Number: TR-ASTELLAS-2025-AER-071086

PATIENT
  Age: 71 Year
  Sex: Female

DRUGS (2)
  1. XOSPATA [Suspect]
     Active Substance: GILTERITINIB
     Indication: Acute myeloid leukaemia refractory
     Route: 065
     Dates: start: 2022
  2. XOSPATA [Suspect]
     Active Substance: GILTERITINIB
     Indication: FLT3 gene mutation

REACTIONS (2)
  - Death [Fatal]
  - Therapy non-responder [Unknown]

NARRATIVE: CASE EVENT DATE: 20220101
